FAERS Safety Report 9436488 (Version 2)
Quarter: 2013Q3

REPORT INFORMATION
  Report Type: Spontaneous
  Country: GB (occurrence: GB)
  Receive Date: 20130802
  Receipt Date: 20130808
  Transmission Date: 20140515
  Serious: Yes (Other)
  Sender: FDA-Public Use
  Company Number: GB-ROCHE-1238894

PATIENT
  Age: 93 Year
  Sex: Female

DRUGS (8)
  1. LUCENTIS [Suspect]
     Indication: AGE-RELATED MACULAR DEGENERATION
     Route: 050
  2. LUCENTIS [Suspect]
     Route: 050
     Dates: start: 201110
  3. LUCENTIS [Suspect]
     Route: 050
     Dates: start: 20130103
  4. AVASTIN [Suspect]
     Indication: PRODUCT USED FOR UNKNOWN INDICATION
     Route: 050
  5. AVASTIN [Suspect]
     Indication: OFF LABEL USE
  6. METFORMIN [Concomitant]
  7. LOSARTAN [Concomitant]
  8. PREDNISOLONE [Concomitant]

REACTIONS (3)
  - Endophthalmitis [Recovered/Resolved with Sequelae]
  - Eye pain [Unknown]
  - Visual acuity reduced [Not Recovered/Not Resolved]
